FAERS Safety Report 12603769 (Version 3)
Quarter: 2016Q4

REPORT INFORMATION
  Report Type: Report from Study
  Country: RU (occurrence: RU)
  Receive Date: 20160728
  Receipt Date: 20161118
  Transmission Date: 20170207
  Serious: Yes (Death, Life-Threatening, Hospitalization)
  Sender: FDA-Public Use
  Company Number: RU-AMGEN-2014-1456

PATIENT
  Age: 74 Year
  Sex: Female
  Weight: 63 kg

DRUGS (17)
  1. ARIFON RETARD [Concomitant]
     Indication: HYPERTENSION
  2. MELPHALAN [Suspect]
     Active Substance: MELPHALAN
     Indication: PLASMA CELL MYELOMA
     Dosage: 14 MG, PER CHEMO REGIM
     Route: 048
     Dates: start: 20140620, end: 20140623
  3. ARIFON RETARD [Concomitant]
     Indication: ANGINA PECTORIS
  4. VEROSPIRON [Concomitant]
     Active Substance: SPIRONOLACTONE
     Indication: CORONARY ARTERY DISEASE
     Dosage: 25 MG, QD
     Route: 048
     Dates: start: 201205
  5. VEROSPIRON [Concomitant]
     Active Substance: SPIRONOLACTONE
     Indication: HYPERTENSION
  6. CARFILZOMIB [Suspect]
     Active Substance: CARFILZOMIB
     Indication: PLASMA CELL MYELOMA
     Dosage: 36 MG/M2, PER CHEMO REGIM
     Route: 042
     Dates: start: 20140620, end: 20140628
  7. ARIFON RETARD [Concomitant]
     Indication: CORONARY ARTERY DISEASE
     Dosage: 1.5 MG, QD
     Route: 048
     Dates: start: 201205
  8. VEROSPIRON [Concomitant]
     Active Substance: SPIRONOLACTONE
     Indication: ANGINA PECTORIS
  9. ACICLOVIR [Concomitant]
     Active Substance: ACYCLOVIR
     Indication: ANTIVIRAL PROPHYLAXIS
     Dosage: 400 MG, QD
     Route: 048
     Dates: start: 20140620, end: 20140629
  10. DEXAMETHASONE. [Concomitant]
     Active Substance: DEXAMETHASONE
     Indication: PREMEDICATION
     Dosage: 4 MG, QD
     Route: 048
     Dates: start: 20140627, end: 20140628
  11. PREDNISONE. [Suspect]
     Active Substance: PREDNISONE
     Indication: PLASMA CELL MYELOMA
     Dosage: 100 MG, PER CHEMO REGIM
     Route: 048
     Dates: start: 20140620, end: 20140623
  12. CONCOR COR [Concomitant]
     Active Substance: BISOPROLOL FUMARATE
     Indication: ANGINA PECTORIS
  13. CONCOR COR [Concomitant]
     Active Substance: BISOPROLOL FUMARATE
     Indication: CORONARY ARTERY DISEASE
     Dosage: 2.5 MG, QD
     Route: 048
     Dates: start: 201205
  14. CALCHEK [Concomitant]
     Indication: ANGINA PECTORIS
  15. CONCOR COR [Concomitant]
     Active Substance: BISOPROLOL FUMARATE
     Indication: HYPERTENSION
  16. CALCHEK [Concomitant]
     Indication: CORONARY ARTERY DISEASE
     Dosage: 2.5 MG, QD
     Route: 048
     Dates: start: 201205
  17. CALCHEK [Concomitant]
     Indication: HYPERTENSION

REACTIONS (1)
  - Pneumonia [Fatal]

NARRATIVE: CASE EVENT DATE: 20140629
